FAERS Safety Report 7529725-6 (Version None)
Quarter: 2011Q2

REPORT INFORMATION
  Report Type: 
  Country: None (occurrence: None)
  Receive Date: 20110607
  Receipt Date: 20110530
  Transmission Date: 20111010
  Serious: Yes (Hospitalization)
  Sender: FDA-Public Use
  Company Number: B0723972A

PATIENT
  Age: 1 Year
  Sex: Male

DRUGS (6)
  1. AMOXICILLIN AND CLAVULANATE POTASSIUM [Concomitant]
     Route: 048
     Dates: start: 20110520, end: 20110525
  2. MUCODYNE [Concomitant]
     Route: 048
     Dates: start: 20110520, end: 20110525
  3. ASVERIN [Concomitant]
     Route: 048
     Dates: start: 20110520, end: 20110525
  4. VALTREX [Suspect]
     Indication: EXANTHEMA SUBITUM
     Route: 048
     Dates: start: 20110525, end: 20110526
  5. PERIACTIN [Concomitant]
     Route: 048
     Dates: start: 20110520, end: 20110525
  6. HOKUNALIN [Concomitant]
     Route: 065
     Dates: start: 20110520, end: 20110525

REACTIONS (1)
  - PANCYTOPENIA [None]
